FAERS Safety Report 4558811-8 (Version None)
Quarter: 2005Q1

REPORT INFORMATION
  Report Type: 
  Country: None (occurrence: None)
  Receive Date: 20050121
  Receipt Date: 20050113
  Transmission Date: 20050727
  Serious: Yes (Hospitalization)
  Sender: FDA-Public Use
  Company Number: FR-GLAXOSMITHKLINE-B0364536A

PATIENT
  Age: 3 Month
  Sex: Male
  Weight: 6.2 kg

DRUGS (2)
  1. RETROVIR [Suspect]
     Indication: ANTIVIRAL PROPHYLAXIS
     Route: 048
  2. UNKNOWN ANTIRETROVIRAL TREATMENT [Suspect]

REACTIONS (8)
  - BACTERIAL INFECTION [None]
  - CAESAREAN SECTION [None]
  - DRUG EXPOSURE DURING PREGNANCY [None]
  - GASTROOESOPHAGEAL REFLUX DISEASE [None]
  - HYPERTHERMIA [None]
  - MICROCYTIC ANAEMIA [None]
  - NEONATAL DISORDER [None]
  - PYELONEPHRITIS [None]
